FAERS Safety Report 9281407 (Version 5)
Quarter: 2014Q3

REPORT INFORMATION
  Report Type: Spontaneous
  Country: US (occurrence: US)
  Receive Date: 20130509
  Receipt Date: 20140826
  Transmission Date: 20150326
  Serious: Yes (Other)
  Sender: FDA-Public Use
  Company Number: US-009507513-1305USA004828

PATIENT
  Sex: Female
  Weight: 68.27 kg

DRUGS (1)
  1. NUVARING [Suspect]
     Active Substance: ETHINYL ESTRADIOL\ETONOGESTREL
     Indication: CONTRACEPTION
     Dosage: 3 WEEKS IN ,ONE WEEK OUT
     Route: 067
     Dates: start: 200907, end: 201207

REACTIONS (8)
  - Atrial fibrillation [Unknown]
  - Pulmonary embolism [Unknown]
  - Arrhythmia [Unknown]
  - Pneumonia [Unknown]
  - Blood disorder [Unknown]
  - Breast prosthesis user [Unknown]
  - Heart rate irregular [Unknown]
  - Pulmonary infarction [Unknown]

NARRATIVE: CASE EVENT DATE: 201206
